FAERS Safety Report 10099861 (Version 1)
Quarter: 2014Q2

REPORT INFORMATION
  Report Type: Spontaneous
  Country: US (occurrence: None)
  Receive Date: 20140422
  Receipt Date: 20140422
  Transmission Date: 20141212
  Serious: No
  Sender: FDA-Public Use
  Company Number: None

PATIENT
  Age: 35 Year
  Sex: Female
  Weight: 47.63 kg

DRUGS (1)
  1. DULOXETINE HCL [Suspect]
     Indication: MIGRAINE PROPHYLAXIS
     Dosage: 1 PILL   ONCE DAILY TAKEN BY MOUTH?
     Route: 048
     Dates: start: 20140101, end: 20140411

REACTIONS (14)
  - Insomnia [None]
  - Confusional state [None]
  - Dizziness [None]
  - Irritability [None]
  - Anger [None]
  - Mood swings [None]
  - Tremor [None]
  - Hot flush [None]
  - Disorientation [None]
  - Hallucination [None]
  - Hyperhidrosis [None]
  - Off label use [None]
  - Visual impairment [None]
  - Paraesthesia [None]
